FAERS Safety Report 5082179-4 (Version None)
Quarter: 2006Q3

REPORT INFORMATION
  Report Type: 
  Country: None (occurrence: None)
  Receive Date: 20060817
  Receipt Date: 20060810
  Transmission Date: 20061208
  Serious: Yes (Other)
  Sender: FDA-Public Use
  Company Number: US-JNJFOC-20060802900

PATIENT
  Sex: Male
  Weight: 86.18 kg

DRUGS (6)
  1. REMICADE [Suspect]
     Indication: CROHN'S DISEASE
     Route: 042
  2. LOPERAMIDE [Concomitant]
  3. AZATHIOPRINE [Concomitant]
  4. IRON [Concomitant]
  5. LEXAPRO [Concomitant]
  6. PREDNISONE [Concomitant]

REACTIONS (3)
  - HYPOAESTHESIA [None]
  - PARAESTHESIA [None]
  - VISUAL ACUITY REDUCED [None]
